FAERS Safety Report 8176665-8 (Version None)
Quarter: 2012Q1

REPORT INFORMATION
  Report Type: 
  Country: None (occurrence: None)
  Receive Date: 20120301
  Receipt Date: 20120223
  Transmission Date: 20120608
  Serious: Yes (Other)
  Sender: FDA-Public Use
  Company Number: DK-TEVA-324203ISR

PATIENT
  Sex: Male

DRUGS (2)
  1. ENBREL [Suspect]
     Indication: RHEUMATOID ARTHRITIS
     Dosage: ON PAUSE
     Dates: start: 20030925, end: 20110517
  2. METHOTREXATE [Suspect]
     Indication: RHEUMATOID ARTHRITIS
     Dosage: STRENGTH: 2,5 MG
     Route: 048
     Dates: start: 20041020, end: 20101213

REACTIONS (2)
  - RENAL CELL CARCINOMA [None]
  - MESOTHELIOMA [None]
